FAERS Safety Report 8547668-6 (Version None)
Quarter: 2012Q3

REPORT INFORMATION
  Report Type: 
  Country: None (occurrence: None)
  Receive Date: 20120727
  Receipt Date: 20111110
  Transmission Date: 20120928
  Serious: Yes (Other)
  Sender: FDA-Public Use
  Company Number: US-ASTRAZENECA-2011SE68641

PATIENT
  Age: 53 Year
  Sex: Female
  Weight: 74.8 kg

DRUGS (3)
  1. SEROQUEL XR [Suspect]
     Route: 048
     Dates: start: 20111007, end: 20111007
  2. SEROQUEL XR [Suspect]
     Route: 048
     Dates: start: 20111008, end: 20111009
  3. SEROQUEL XR [Suspect]
     Indication: SLEEP DISORDER
     Route: 048
     Dates: start: 20111005, end: 20111006

REACTIONS (25)
  - APHAGIA [None]
  - VISUAL IMPAIRMENT [None]
  - NERVOUSNESS [None]
  - ILL-DEFINED DISORDER [None]
  - DROOLING [None]
  - MUSCLE SPASMS [None]
  - HYPERTENSION [None]
  - FALL [None]
  - WITHDRAWAL SYNDROME [None]
  - DYSGEUSIA [None]
  - EPISTAXIS [None]
  - OFF LABEL USE [None]
  - TARDIVE DYSKINESIA [None]
  - FEELING ABNORMAL [None]
  - RASH GENERALISED [None]
  - DRY MOUTH [None]
  - DRUG DOSE OMISSION [None]
  - TONGUE DISCOLOURATION [None]
  - NEUROLEPTIC MALIGNANT SYNDROME [None]
  - EMOTIONAL POVERTY [None]
  - INSOMNIA [None]
  - THROAT IRRITATION [None]
  - VAGINAL HAEMORRHAGE [None]
  - SOMNOLENCE [None]
  - HEARING IMPAIRED [None]
